FAERS Safety Report 10683509 (Version 3)
Quarter: 2015Q1

REPORT INFORMATION
  Report Type: Spontaneous
  Country: PT (occurrence: PT)
  Receive Date: 20141230
  Receipt Date: 20150130
  Transmission Date: 20150720
  Serious: Yes (Hospitalization, Other)
  Sender: FDA-Public Use
  Company Number: PT-ABBVIE-14P-130-1327040-00

PATIENT
  Age: 16 Year
  Sex: Female

DRUGS (2)
  1. VALPROIC ACID. [Suspect]
     Active Substance: VALPROIC ACID
     Indication: PRODUCT USED FOR UNKNOWN INDICATION
     Route: 048
  2. CARBAMAZEPINE. [Suspect]
     Active Substance: CARBAMAZEPINE
     Indication: PRODUCT USED FOR UNKNOWN INDICATION
     Route: 048

REACTIONS (9)
  - Platelet count decreased [Recovered/Resolved]
  - Loss of consciousness [Recovered/Resolved]
  - Hypotension [Recovered/Resolved]
  - Drug level increased [Recovered/Resolved]
  - Overdose [Recovered/Resolved]
  - Hyporesponsive to stimuli [Recovered/Resolved]
  - Coma [Recovered/Resolved]
  - Neurological symptom [Recovered/Resolved]
  - Coma scale abnormal [Recovered/Resolved]
